FAERS Safety Report 7183784-1 (Version None)
Quarter: 2010Q4

REPORT INFORMATION
  Report Type: 
  Country: None (occurrence: None)
  Receive Date: 20101222
  Receipt Date: 20101216
  Transmission Date: 20110411
  Serious: Yes (Other)
  Sender: FDA-Public Use
  Company Number: BR-SANOFI-AVENTIS-2010SA076309

PATIENT
  Sex: Female
  Weight: 74 kg

DRUGS (10)
  1. LANTUS [Suspect]
     Indication: TYPE 2 DIABETES MELLITUS
     Route: 058
     Dates: start: 20050101
  2. OPTIPEN [Suspect]
     Indication: TYPE 2 DIABETES MELLITUS
     Dates: start: 20050101
  3. LOSARTAN [Concomitant]
     Route: 048
     Dates: start: 20000101
  4. GLUCOVANCE [Concomitant]
     Route: 048
     Dates: start: 20000101
  5. MEMANTINE [Concomitant]
     Route: 048
     Dates: start: 20080101
  6. ERANZ [Concomitant]
     Route: 048
     Dates: start: 20080101
  7. ALENDRONATE [Concomitant]
     Route: 048
     Dates: start: 20040101
  8. AMLODIPINE [Concomitant]
     Route: 048
     Dates: start: 20000101
  9. LIPITOR [Concomitant]
     Route: 048
  10. METFORMIN [Concomitant]
     Route: 048

REACTIONS (3)
  - DEMENTIA ALZHEIMER'S TYPE [None]
  - MEMORY IMPAIRMENT [None]
  - WRONG TECHNIQUE IN DRUG USAGE PROCESS [None]
